FAERS Safety Report 11980992 (Version 1)
Quarter: 2016Q1

REPORT INFORMATION
  Report Type: Spontaneous
  Country: US (occurrence: US)
  Receive Date: 20160129
  Receipt Date: 20160129
  Transmission Date: 20160526
  Serious: No
  Sender: FDA-Public Use
  Company Number: GXBR2015US002682

PATIENT
  Sex: Female
  Weight: 52.15 kg

DRUGS (5)
  1. MINOXIDIL. [Concomitant]
     Active Substance: MINOXIDIL
     Indication: ALOPECIA
     Dosage: UNK DF, UNK
  2. CLOBETASOL PROPIONATE. [Suspect]
     Active Substance: CLOBETASOL PROPIONATE
     Indication: LICHEN SCLEROSUS
     Dosage: 0.05 %, UNK
     Route: 061
  3. RALOXIFENE. [Concomitant]
     Active Substance: RALOXIFENE
     Dosage: UNK DF, UNK
  4. ATORVASTATIN [Concomitant]
     Active Substance: ATORVASTATIN
     Dosage: UNK
  5. LEVOTHYROXINE. [Concomitant]
     Active Substance: LEVOTHYROXINE
     Dosage: UNK

REACTIONS (2)
  - Alopecia [Not Recovered/Not Resolved]
  - Expired product administered [Recovered/Resolved]
